FAERS Safety Report 11147264 (Version 5)
Quarter: 2015Q3

REPORT INFORMATION
  Report Type: Report from Study
  Country: CZ (occurrence: CZ)
  Receive Date: 20150528
  Receipt Date: 20150831
  Transmission Date: 20151125
  Serious: Yes (Death, Life-Threatening, Hospitalization, Other)
  Sender: FDA-Public Use
  Company Number: CZ-GILEAD-2015-0155209

PATIENT
  Age: 81 Year
  Sex: Male
  Weight: 72 kg

DRUGS (33)
  1. BENDAMUSTINE [Suspect]
     Active Substance: BENDAMUSTINE
     Dosage: 1 DF, CYCLICAL
     Route: 042
  2. RITUXIMAB [Suspect]
     Active Substance: RITUXIMAB
     Dosage: 1 DF, CYCLICAL
     Route: 042
  3. BENDAMUSTINE [Suspect]
     Active Substance: BENDAMUSTINE
     Dosage: 1 DF, CYCLICAL
     Route: 042
  4. DETRALEX [Concomitant]
     Active Substance: DIOSMIN\HESPERIDIN
     Dosage: UNK
     Route: 048
     Dates: start: 20150105
  5. MILURIT [Concomitant]
     Active Substance: ALLOPURINOL
     Route: 048
     Dates: start: 20150224
  6. RITUXIMAB [Suspect]
     Active Substance: RITUXIMAB
     Dosage: 1 DF, CYCLICAL
     Route: 042
  7. BENDAMUSTINE [Suspect]
     Active Substance: BENDAMUSTINE
     Dosage: 162 MG, CYCLICAL
     Route: 042
     Dates: start: 20150427, end: 20150427
  8. BENDAMUSTINE [Suspect]
     Active Substance: BENDAMUSTINE
     Dosage: 1 DF, CYCLICAL
     Route: 042
  9. ANOPYRIN [Concomitant]
     Active Substance: ASPIRIN
     Route: 048
     Dates: start: 20150105
  10. RITUXIMAB [Suspect]
     Active Substance: RITUXIMAB
     Dosage: 900 MG, CYCLICAL
     Route: 042
     Dates: start: 20150330, end: 20150330
  11. BENDAMUSTINE [Suspect]
     Active Substance: BENDAMUSTINE
     Indication: CHRONIC LYMPHOCYTIC LEUKAEMIA
     Dosage: 162 MG, CYCLICAL
     Route: 042
     Dates: start: 20150224, end: 20150224
  12. BENDAMUSTINE [Suspect]
     Active Substance: BENDAMUSTINE
     Dosage: 1 DF, CYCLICAL
     Route: 042
  13. ZOFRAN [Concomitant]
     Active Substance: ONDANSETRON HYDROCHLORIDE
     Dosage: UNK
     Route: 048
     Dates: start: 20150224
  14. BELOGENT [Concomitant]
     Indication: RASH
     Route: 061
     Dates: start: 20150504, end: 20150524
  15. RITUXIMAB [Suspect]
     Active Substance: RITUXIMAB
     Indication: CHRONIC LYMPHOCYTIC LEUKAEMIA
     Dosage: 175 MG, CYCLICAL
     Route: 042
     Dates: start: 20150224, end: 20150224
  16. BENDAMUSTINE [Suspect]
     Active Substance: BENDAMUSTINE
     Dosage: 162 MG, CYCLICAL
     Route: 042
     Dates: start: 20150330, end: 20150330
  17. BENDAMUSTINE [Suspect]
     Active Substance: BENDAMUSTINE
     Dosage: 162 MG, CYCLICAL
     Route: 042
     Dates: start: 20150331, end: 20150331
  18. LACTULOSA [Concomitant]
     Route: 048
     Dates: start: 20150310
  19. DITHIADEN [Concomitant]
     Active Substance: BISULEPIN
     Dosage: UNK
     Route: 042
     Dates: start: 20150224, end: 20150427
  20. HYDROCORTISON                      /00028601/ [Concomitant]
     Active Substance: HYDROCORTISONE
     Dosage: UNK
     Route: 042
     Dates: start: 20150224, end: 20150427
  21. KYTRIL [Concomitant]
     Active Substance: GRANISETRON HYDROCHLORIDE
     Route: 042
     Dates: start: 20150427, end: 20150427
  22. IDELALISIB [Suspect]
     Active Substance: IDELALISIB
     Indication: CHRONIC LYMPHOCYTIC LEUKAEMIA
     Dosage: 150 MG, BID
     Route: 048
     Dates: start: 20150224, end: 20150524
  23. RITUXIMAB [Suspect]
     Active Substance: RITUXIMAB
     Dosage: 1 DF, CYCLICAL
     Route: 042
  24. BENDAMUSTINE [Suspect]
     Active Substance: BENDAMUSTINE
     Dosage: 162 MG, CYCLICAL
     Route: 042
     Dates: start: 20150225, end: 20150225
  25. BENDAMUSTINE [Suspect]
     Active Substance: BENDAMUSTINE
     Dosage: 1 DF, CYCLICAL
     Route: 042
  26. BENDAMUSTINE [Suspect]
     Active Substance: BENDAMUSTINE
     Dosage: 1 DF, CYCLICAL
     Route: 042
  27. LUSOPRESS [Concomitant]
     Active Substance: NITRENDIPINE
     Indication: HYPERTENSION
     Dosage: UNK
     Route: 048
     Dates: start: 2009
  28. PERFALGAN [Concomitant]
     Active Substance: ACETAMINOPHEN
     Indication: INFUSION RELATED REACTION
     Route: 042
     Dates: start: 20150428, end: 20150428
  29. RITUXIMAB [Suspect]
     Active Substance: RITUXIMAB
     Dosage: 900 MG, CYCLICAL
     Route: 042
     Dates: start: 20150427, end: 20150427
  30. BENDAMUSTINE [Suspect]
     Active Substance: BENDAMUSTINE
     Dosage: 1 DF, CYCLICAL
     Route: 042
  31. PARALEN [Concomitant]
     Active Substance: ACETAMINOPHEN
     Dosage: UNK
     Route: 048
     Dates: start: 20150224, end: 20150427
  32. BELOGENT [Concomitant]
     Route: 061
     Dates: start: 20150504, end: 20150511
  33. TAZOCIN [Concomitant]
     Active Substance: PIPERACILLIN SODIUM\TAZOBACTAM SODIUM
     Indication: INFUSION RELATED REACTION
     Route: 042
     Dates: start: 20150428, end: 20150429

REACTIONS (4)
  - Cardiopulmonary failure [Fatal]
  - Pneumocystis jirovecii pneumonia [Recovered/Resolved with Sequelae]
  - Blood immunoglobulin G decreased [None]
  - Cardiac arrest [None]

NARRATIVE: CASE EVENT DATE: 20150525
